FAERS Safety Report 4498730-9 (Version None)
Quarter: 2004Q4

REPORT INFORMATION
  Report Type: 
  Country: None (occurrence: None)
  Receive Date: 20041108
  Receipt Date: 20041025
  Transmission Date: 20050328
  Serious: Yes (Other)
  Sender: FDA-Public Use
  Company Number: 2004070098

PATIENT
  Age: 13 Year
  Sex: Female

DRUGS (7)
  1. ZOLOFT [Suspect]
     Indication: PREMENSTRUAL SYNDROME
     Dosage: 50 MG (50 MG, 1 IN 1 D), ORAL
     Route: 049
     Dates: start: 20040801
  2. GEODON [Suspect]
     Indication: ABNORMAL BEHAVIOUR
     Dosage: 180 MG (60 MG, 1 IN 1 D), ORAL
     Route: 048
     Dates: start: 20040101
  3. GEODON [Suspect]
     Indication: AGITATION
     Dosage: 180 MG (60 MG, 1 IN 1 D), ORAL
     Route: 048
     Dates: start: 20040101
  4. BUSPIRONE HCL [Suspect]
     Indication: ABNORMAL BEHAVIOUR
     Dates: start: 20021001
  5. CLONIDINE [Suspect]
     Indication: ABNORMAL BEHAVIOUR
     Dates: start: 20021001
  6. QUETIAPINE FUMARATE (QUETIAPINE FUMARATE) [Concomitant]
  7. TRAZODONE HCL [Concomitant]

REACTIONS (2)
  - GRAND MAL CONVULSION [None]
  - PREMENSTRUAL SYNDROME [None]
